FAERS Safety Report 10593505 (Version 4)
Quarter: 2014Q4

REPORT INFORMATION
  Report Type: Spontaneous
  Country: JP (occurrence: JP)
  Receive Date: 20141119
  Receipt Date: 20141204
  Transmission Date: 20150529
  Serious: Yes (Hospitalization)
  Sender: FDA-Public Use
  Company Number: JP-BRISTOL-MYERS SQUIBB COMPANY-21553235

PATIENT
  Age: 57 Year
  Sex: Male
  Weight: 45.7 kg

DRUGS (10)
  1. REBAMIPIDE [Concomitant]
     Active Substance: REBAMIPIDE
     Indication: PROPHYLAXIS
  2. VENA [Concomitant]
     Active Substance: DIPHENHYDRAMINE HYDROCHLORIDE
     Indication: PROPHYLAXIS
  3. 5-FU [Concomitant]
     Active Substance: FLUOROURACIL
     Indication: HYPOPHARYNGEAL CANCER
  4. DECADRON [Concomitant]
     Active Substance: DEXAMETHASONE
     Indication: PROPHYLAXIS OF NAUSEA AND VOMITING
  5. KALIMATE [Concomitant]
     Active Substance: POLYSTYRENE SULFONIC ACID
     Indication: HYPERKALAEMIA
  6. RANDA [Concomitant]
     Active Substance: CISPLATIN
     Indication: HYPOPHARYNGEAL CANCER
  7. ERBITUX [Suspect]
     Active Substance: CETUXIMAB
     Indication: HYPOPHARYNGEAL CANCER
     Dosage: 04NOV14
     Route: 041
     Dates: start: 20141014
  8. DECADRON [Suspect]
     Active Substance: DEXAMETHASONE
     Indication: PROPHYLAXIS OF NAUSEA AND VOMITING
     Dosage: ^6T X2^ PER DAY
     Route: 048
     Dates: start: 20141015
  9. BERAPROST SODIUM [Concomitant]
     Active Substance: BERAPROST SODIUM
     Indication: ARTERIOSCLEROSIS
  10. LOXOPROFEN [Concomitant]
     Active Substance: LOXOPROFEN
     Indication: CANCER PAIN

REACTIONS (3)
  - Oesophagitis [Not Recovered/Not Resolved]
  - White blood cell count increased [Recovered/Resolved]
  - Duodenal ulcer perforation [Recovered/Resolved]

NARRATIVE: CASE EVENT DATE: 20141015
